FAERS Safety Report 9453018 (Version 7)
Quarter: 2017Q3

REPORT INFORMATION
  Report Type: Spontaneous
  Country: US (occurrence: US)
  Receive Date: 20130812
  Receipt Date: 20170811
  Transmission Date: 20171128
  Serious: Yes (Hospitalization, Disabling, Other)
  Sender: FDA-Public Use
  Company Number: US-009507513-1308USA001954

PATIENT
  Sex: Male
  Weight: 108.84 kg

DRUGS (3)
  1. PROPECIA [Suspect]
     Active Substance: FINASTERIDE
     Indication: ALOPECIA AREATA
  2. PROPECIA [Suspect]
     Active Substance: FINASTERIDE
     Indication: ANDROGENETIC ALOPECIA
     Dosage: 1 MG, UNK
     Route: 048
     Dates: start: 2005, end: 2007
  3. PROSCAR [Suspect]
     Active Substance: FINASTERIDE
     Indication: ANDROGENETIC ALOPECIA
     Dosage: 5 MG, QD
     Route: 048
     Dates: start: 2007, end: 2008

REACTIONS (46)
  - Blood testosterone free decreased [Unknown]
  - Primary hyperaldosteronism [Not Recovered/Not Resolved]
  - Leukopenia [Unknown]
  - Renal disorder [Unknown]
  - Stress at work [Unknown]
  - Gastrooesophageal reflux disease [Unknown]
  - Crohn^s disease [Not Recovered/Not Resolved]
  - Major depression [Not Recovered/Not Resolved]
  - Anxiety [Not Recovered/Not Resolved]
  - Sleep apnoea syndrome [Recovered/Resolved]
  - Obesity [Unknown]
  - Drug ineffective [Unknown]
  - Bradyarrhythmia [Unknown]
  - Tendon injury [Unknown]
  - Irritable bowel syndrome [Unknown]
  - Insomnia [Unknown]
  - Cognitive disorder [Not Recovered/Not Resolved]
  - Gastric ulcer [Unknown]
  - Type 2 diabetes mellitus [Not Recovered/Not Resolved]
  - Urticaria [Unknown]
  - Sexual dysfunction [Not Recovered/Not Resolved]
  - Anaemia [Unknown]
  - Asthenia [Unknown]
  - Hypertension [Not Recovered/Not Resolved]
  - Ejaculation failure [Unknown]
  - Seizure [Unknown]
  - Drug administration error [Unknown]
  - Hyperhidrosis [Unknown]
  - Pigmentation disorder [Unknown]
  - Seborrhoeic keratosis [Unknown]
  - Back pain [Unknown]
  - Surgery [Unknown]
  - Post inflammatory pigmentation change [Unknown]
  - Rash [Unknown]
  - Libido decreased [Not Recovered/Not Resolved]
  - Syncope [Unknown]
  - Major depression [Unknown]
  - Benign prostatic hyperplasia [Unknown]
  - Dry skin [Unknown]
  - Dizziness [Unknown]
  - Skin irritation [Unknown]
  - Hypogonadism [Unknown]
  - Low density lipoprotein increased [Unknown]
  - Albuminuria [Unknown]
  - Testicular pain [Unknown]
  - Erectile dysfunction [Unknown]

NARRATIVE: CASE EVENT DATE: 2005
